FAERS Safety Report 18481098 (Version 2)
Quarter: 2020Q4

REPORT INFORMATION
  Report Type: Spontaneous
  Country: CN (occurrence: CN)
  Receive Date: 20201109
  Receipt Date: 20201130
  Transmission Date: 20210114
  Serious: Yes (Other)
  Sender: FDA-Public Use
  Company Number: CN-BAYER-2020-234465

PATIENT
  Age: 40 Year
  Sex: Female

DRUGS (1)
  1. YASMIN [Suspect]
     Active Substance: DROSPIRENONE\ETHINYL ESTRADIOL
     Indication: MENORRHAGIA
     Dosage: UNK
     Route: 048
     Dates: start: 202010, end: 202010

REACTIONS (3)
  - Product use in unapproved indication [None]
  - Deafness [Recovering/Resolving]
  - Ear discomfort [None]

NARRATIVE: CASE EVENT DATE: 202010
